FAERS Safety Report 4276126-2 (Version None)
Quarter: 2004Q1

REPORT INFORMATION
  Report Type: 
  Country: None (occurrence: None)
  Receive Date: 20040121
  Receipt Date: 20031021
  Transmission Date: 20041129
  Serious: No
  Sender: FDA-Public Use
  Company Number: US-GLAXOSMITHKLINE-A0430994A

PATIENT
  Age: 57 Year
  Sex: Male

DRUGS (4)
  1. VALTREX [Suspect]
     Dosage: 500CAPL TWICE PER DAY
     Route: 048
     Dates: start: 20031001, end: 20031004
  2. TOPROL-XL [Concomitant]
  3. CENTRUM VITAMINS [Concomitant]
  4. TYLENOL PM [Concomitant]

REACTIONS (3)
  - DRUG INEFFECTIVE [None]
  - PARAESTHESIA [None]
  - PHARMACEUTICAL PRODUCT COMPLAINT [None]
